FAERS Safety Report 7915745-6 (Version None)
Quarter: 2011Q4

REPORT INFORMATION
  Report Type: 
  Country: None (occurrence: None)
  Receive Date: 20111115
  Receipt Date: 20111031
  Transmission Date: 20120403
  Serious: Yes (Other)
  Sender: FDA-Public Use
  Company Number: GB-ARROW GEN-2011-13675

PATIENT
  Age: 68 Year
  Sex: Female

DRUGS (7)
  1. ATORVASTATIN [Concomitant]
     Indication: PRODUCT USED FOR UNKNOWN INDICATION
     Route: 065
  2. FOLIC ACID [Concomitant]
     Indication: PRODUCT USED FOR UNKNOWN INDICATION
     Route: 065
  3. MIRTAZAPINE [Suspect]
     Indication: PANIC ATTACK
     Dosage: UNK
     Route: 065
     Dates: start: 20080601, end: 20090801
  4. ALENDRONIC ACID [Concomitant]
     Indication: PRODUCT USED FOR UNKNOWN INDICATION
     Dosage: 70 MG, 1/WEEK
     Route: 065
  5. IRBESARTAN [Concomitant]
     Indication: PRODUCT USED FOR UNKNOWN INDICATION
     Route: 065
  6. METFORMIN HCL [Concomitant]
     Indication: PRODUCT USED FOR UNKNOWN INDICATION
     Route: 065
  7. SITAGLIPTIN [Concomitant]
     Indication: PRODUCT USED FOR UNKNOWN INDICATION
     Route: 065

REACTIONS (2)
  - HYPERTONIA [None]
  - TREMOR [None]
